FAERS Safety Report 4470083-1 (Version None)
Quarter: 2004Q3

REPORT INFORMATION
  Report Type: 
  Country: None (occurrence: None)
  Receive Date: 20040910
  Receipt Date: 20040809
  Transmission Date: 20050211
  Serious: No
  Sender: FDA-Public Use
  Company Number: 2004228085US

PATIENT
  Age: 65 Year
  Sex: Female
  Weight: 81.6 kg

DRUGS (6)
  1. BEXTRA [Suspect]
     Indication: ARTHRITIS
     Dosage: 20 MG, QD
     Dates: start: 20030101
  2. CALAN [Concomitant]
  3. SYNTHROID [Concomitant]
  4. MAXZIDE [Concomitant]
  5. PREMARIN [Concomitant]
  6. PROVERA [Concomitant]

REACTIONS (1)
  - GENITAL PRURITUS FEMALE [None]
